FAERS Safety Report 25464124 (Version 1)
Quarter: 2025Q2

REPORT INFORMATION
  Report Type: Report from Study
  Country: US (occurrence: US)
  Receive Date: 20250621
  Receipt Date: 20250621
  Transmission Date: 20250716
  Serious: Yes (Other)
  Sender: AUROBINDO
  Company Number: US-MYLANLABS-2020M1044183

PATIENT
  Age: 46 Year
  Sex: Male
  Weight: 88.6 kg

DRUGS (1)
  1. KETAMINE [Suspect]
     Active Substance: KETAMINE
     Indication: Agitation
     Route: 030

REACTIONS (1)
  - Drug ineffective [Unknown]
